FAERS Safety Report 19399833 (Version 2)
Quarter: 2021Q3

REPORT INFORMATION
  Report Type: Spontaneous
  Country: NL (occurrence: NL)
  Receive Date: 20210610
  Receipt Date: 20210702
  Transmission Date: 20211014
  Serious: Yes (Other)
  Sender: FDA-Public Use
  Company Number: NVSC2021NL128569

PATIENT
  Age: 62 Year
  Sex: Male

DRUGS (10)
  1. SORAFENIB [Interacting]
     Active Substance: SORAFENIB
     Indication: METASTASES TO LUNG
     Dosage: 600 MG, QD (50 PERCENT TO 200 MG IN THE MORNING AND 400 MG IN THE EVENING)
     Route: 065
     Dates: start: 201712
  2. SORAFENIB [Interacting]
     Active Substance: SORAFENIB
     Dosage: 300 MG, QD (REDUCED AGAIN 400 MG ONE DAY AND 200 MG THE OTHER)
     Route: 065
     Dates: start: 201802, end: 201805
  3. LOPERAMIDE [Concomitant]
     Active Substance: LOPERAMIDE
     Indication: PRODUCT USED FOR UNKNOWN INDICATION
     Dosage: UNK
     Route: 065
  4. TACROLIMUS. [Interacting]
     Active Substance: TACROLIMUS
     Indication: METASTASES TO LUNG
     Dosage: 4 MG, QD
     Route: 065
     Dates: start: 201708
  5. METOPROLOL. [Concomitant]
     Active Substance: METOPROLOL
     Indication: PRODUCT USED FOR UNKNOWN INDICATION
     Dosage: UNK
     Route: 065
  6. LOSARTAN. [Concomitant]
     Active Substance: LOSARTAN
     Indication: PRODUCT USED FOR UNKNOWN INDICATION
     Dosage: UNK
     Route: 065
  7. TACROLIMUS. [Suspect]
     Active Substance: TACROLIMUS
     Indication: HEPATOCELLULAR CARCINOMA
     Dosage: 3 MG, QD
     Route: 065
     Dates: start: 201706
  8. SORAFENIB [Interacting]
     Active Substance: SORAFENIB
     Indication: HEPATOCELLULAR CARCINOMA
     Dosage: 200 MG, BID
     Route: 065
     Dates: start: 201706
  9. SORAFENIB [Interacting]
     Active Substance: SORAFENIB
     Dosage: 200 MG, BID (REDUCED AGAIN, 400 MG)
     Route: 065
     Dates: start: 201802
  10. METFORMIN [Concomitant]
     Active Substance: METFORMIN HYDROCHLORIDE
     Indication: PRODUCT USED FOR UNKNOWN INDICATION
     Dosage: UNK
     Route: 065

REACTIONS (5)
  - Hepatotoxicity [Unknown]
  - Malignant neoplasm progression [Unknown]
  - Hepatocellular carcinoma [Unknown]
  - Drug interaction [Unknown]
  - Drug level changed [Unknown]
